FAERS Safety Report 4280585-9 (Version None)
Quarter: 2004Q1

REPORT INFORMATION
  Report Type: 
  Country: None (occurrence: None)
  Receive Date: 20040101
  Receipt Date: 20040120
  Transmission Date: 20041129
  Serious: Yes (Life-Threatening)
  Sender: FDA-Public Use
  Company Number: 2004195671BY

PATIENT
  Sex: 0

DRUGS (1)
  1. DOSTINEX [Suspect]
     Indication: LACTATION DISORDER
     Dosage: 0.5 MG, BID, ORAL
     Route: 048
     Dates: start: 20030101, end: 20030101

REACTIONS (1)
  - UTERINE HAEMORRHAGE [None]
